FAERS Safety Report 13484453 (Version 1)
Quarter: 2017Q2

REPORT INFORMATION
  Report Type: Spontaneous
  Country: JP (occurrence: JP)
  Receive Date: 20170425
  Receipt Date: 20170425
  Transmission Date: 20170830
  Serious: No
  Sender: FDA-Public Use
  Company Number: JP-LUPIN PHARMACEUTICALS INC.-2016-03858

PATIENT
  Age: 71 Year
  Sex: Female

DRUGS (1)
  1. MINOCYCLINE HYDROCHLORIDE. [Suspect]
     Active Substance: MINOCYCLINE HYDROCHLORIDE
     Indication: POLYCYSTIC LIVER DISEASE
     Dosage: UNK UNK,UNK,UNKNOWN
     Route: 058

REACTIONS (1)
  - Catheter site pain [Recovered/Resolved]
